FAERS Safety Report 20332832 (Version 1)
Quarter: 2022Q1

REPORT INFORMATION
  Report Type: Other
  Country: KW (occurrence: None)
  Receive Date: 20220113
  Receipt Date: 20220113
  Transmission Date: 20220423
  Serious: Yes (Hospitalization)
  Sender: FDA-Public Use
  Company Number: KW-Neopharma Inc-000534

PATIENT
  Age: 1 Year
  Sex: Female

DRUGS (4)
  1. AMOXICILLIN\CLAVULANATE POTASSIUM [Suspect]
     Active Substance: AMOXICILLIN\CLAVULANATE POTASSIUM
     Indication: Product used for unknown indication
     Dosage: 500 MG EVERY 12 H
     Route: 042
  2. SALINE [Concomitant]
     Active Substance: SODIUM CHLORIDE
     Indication: Dehydration
  3. DEXTROSE [Concomitant]
     Active Substance: DEXTROSE
     Indication: Dehydration
  4. KCL [Concomitant]
     Active Substance: POTASSIUM CHLORIDE
     Indication: Dehydration

REACTIONS (3)
  - Drug resistance [Unknown]
  - Pyrexia [Recovered/Resolved]
  - Diarrhoea [Recovered/Resolved]
